FAERS Safety Report 5531743-4 (Version None)
Quarter: 2007Q4

REPORT INFORMATION
  Report Type: 
  Country: None (occurrence: None)
  Receive Date: 20071128
  Receipt Date: 20071128
  Transmission Date: 20080405
  Serious: Yes (Other)
  Sender: FDA-Public Use
  Company Number: None

PATIENT
  Sex: Female

DRUGS (1)
  1. LOVASTATIN [Suspect]
     Dosage: 40MG 1 QHS PO
     Route: 048
     Dates: start: 20061201

REACTIONS (2)
  - ABASIA [None]
  - PAIN IN EXTREMITY [None]
